FAERS Safety Report 9539456 (Version 1)
Quarter: 2013Q3

REPORT INFORMATION
  Report Type: Spontaneous
  Country: IN (occurrence: None)
  Receive Date: 20130917
  Receipt Date: 20130917
  Transmission Date: 20140515
  Serious: Yes (Hospitalization, Other)
  Sender: FDA-Public Use
  Company Number: CO-OR-IN-2013-051

PATIENT
  Age: 26 Year
  Sex: Female

DRUGS (1)
  1. PREDNISOLONE [Suspect]
     Indication: AUTOIMMUNE HAEMOLYTIC ANAEMIA
     Dosage: 3 W

REACTIONS (2)
  - Aplasia pure red cell [None]
  - Therapeutic response decreased [None]
